FAERS Safety Report 16371055 (Version 8)
Quarter: 2019Q3

REPORT INFORMATION
  Report Type: Report from Study
  Country: None (occurrence: ES)
  Receive Date: 20190530
  Receipt Date: 20190707
  Transmission Date: 20191004
  Serious: Yes (Hospitalization, Other)
  Sender: FDA-Public Use
  Company Number: ES-ABBVIE-19S-144-2801900-00

PATIENT
  Age: 67 Year
  Sex: Male
  Weight: 65 kg

DRUGS (1)
  1. DUODOPA [Suspect]
     Active Substance: CARBIDOPA\LEVODOPA
     Indication: PARKINSON^S DISEASE
     Route: 050
     Dates: start: 20170622

REACTIONS (10)
  - Haematemesis [Recovered/Resolved]
  - Duodenal ulcer [Recovered/Resolved]
  - Vomiting [Recovered/Resolved]
  - Incorrect route of product administration [Unknown]
  - Fatigue [Recovered/Resolved]
  - Small intestinal haemorrhage [Recovered/Resolved]
  - Anaemia [Recovered/Resolved]
  - Chills [Recovered/Resolved]
  - Asthenia [Recovered/Resolved]
  - Cholecystitis [Recovered/Resolved]

NARRATIVE: CASE EVENT DATE: 20190529
